FAERS Safety Report 17151410 (Version 17)
Quarter: 2021Q3

REPORT INFORMATION
  Report Type: Report from Study
  Country: JP (occurrence: JP)
  Receive Date: 20191213
  Receipt Date: 20210903
  Transmission Date: 20211014
  Serious: Yes (Life-Threatening)
  Sender: FDA-Public Use
  Company Number: JP-ROCHE-2494706

PATIENT
  Age: 68 Year
  Sex: Male
  Weight: 71.2 kg

DRUGS (37)
  1. DEXAMETHASONE SODIUM PHOSPHATE. [Concomitant]
     Active Substance: DEXAMETHASONE SODIUM PHOSPHATE
     Route: 042
     Dates: start: 20191125, end: 20191125
  2. DEXAMETHASONE. [Concomitant]
     Active Substance: DEXAMETHASONE
     Route: 048
     Dates: start: 20191126, end: 20191128
  3. PLATELETS [Concomitant]
     Active Substance: HUMAN PLATELET, ALLOGENIC
     Dosage: DOSE: 10 UNITS
  4. ONOACT [Concomitant]
     Active Substance: LANDIOLOL HYDROCHLORIDE
     Indication: ATRIOVENTRICULAR BLOCK COMPLETE
     Dates: start: 20191211, end: 20191216
  5. REBAMIPIDE [Concomitant]
     Active Substance: REBAMIPIDE
     Dates: start: 20201111
  6. FRESMIN S [Concomitant]
     Active Substance: HYDROXOCOBALAMIN
     Dates: start: 20191108, end: 20191108
  7. ACETAMINOPHEN. [Concomitant]
     Active Substance: ACETAMINOPHEN
     Indication: PYREXIA
     Dates: start: 20191104, end: 20191206
  8. VONOPRAZAN FUMARATE [Concomitant]
     Active Substance: VONOPRAZAN FUMARATE
     Dates: start: 20200629
  9. LOXOPROFEN SODIUM HYDRATE [Concomitant]
     Active Substance: LOXOPROFEN SODIUM DIHYDRATE
     Dates: start: 20201111
  10. D MANNITOL [Concomitant]
     Dates: start: 20191125, end: 20191125
  11. CEFMETAZOLE SODIUM [Concomitant]
     Active Substance: CEFMETAZOLE SODIUM
     Indication: CHOLECYSTITIS ACUTE
     Dates: start: 20200627, end: 20200704
  12. PEMETREXED. [Suspect]
     Active Substance: PEMETREXED
     Indication: NON-SMALL CELL LUNG CANCER
     Dosage: ON DAY 1 OF EACH 21 DAY CYCLE FOR 4 CYCLES?MOST RECENT DOSE PRIOR TO AE/SAE: 25/NOV/2019 (906 MG).
     Route: 042
     Dates: start: 20191125
  13. FAMOTIDINE. [Concomitant]
     Active Substance: FAMOTIDINE
     Dates: start: 20201110, end: 20201110
  14. PALONOSETRON HYDROCHLORIDE. [Concomitant]
     Active Substance: PALONOSETRON HYDROCHLORIDE
     Dates: start: 20191125, end: 20191125
  15. ENOXAPARIN SODIUM. [Concomitant]
     Active Substance: ENOXAPARIN SODIUM
     Dates: start: 20201111, end: 20201112
  16. METOCLOPRAMIDE. [Concomitant]
     Active Substance: METOCLOPRAMIDE
     Indication: NAUSEA
  17. METOCLOPRAMIDE. [Concomitant]
     Active Substance: METOCLOPRAMIDE
     Indication: DECREASED APPETITE
  18. DOMPERIDONE [Concomitant]
     Active Substance: DOMPERIDONE
     Indication: NAUSEA
     Dates: start: 20191202, end: 20191202
  19. ACETAMINOPHEN. [Concomitant]
     Active Substance: ACETAMINOPHEN
     Dates: start: 20200627, end: 20200628
  20. TAZOPIPE [Concomitant]
     Active Substance: PIPERACILLIN SODIUM\TAZOBACTAM SODIUM
     Indication: PYREXIA
     Dates: start: 20191205, end: 20191208
  21. LEVOFLOXACIN. [Concomitant]
     Active Substance: LEVOFLOXACIN
     Dates: end: 20191219
  22. KCL [Concomitant]
     Active Substance: POTASSIUM CHLORIDE
     Indication: ATRIOVENTRICULAR BLOCK COMPLETE
     Dates: start: 20191212, end: 20191228
  23. ATEZOLIZUMAB. [Suspect]
     Active Substance: ATEZOLIZUMAB
     Indication: NON-SMALL CELL LUNG CANCER
     Dosage: ON DAY 1 OF EACH 21 DAY CYCLE FOR 4 CYCLES?MOST RECENT DOSE PRIOR TO AE/SAE: 25/NOV/2019
     Route: 041
     Dates: start: 20191125
  24. CISPLATIN. [Suspect]
     Active Substance: CISPLATIN
     Indication: NON-SMALL CELL LUNG CANCER
     Dosage: ON DAY 1 OF EACH 21 DAY CYCLE FOR 4 CYCLES?MOST RECENT DOSE PRIOR TO AE/SAE: 25/NOV/2019 (135 MG)
     Route: 042
     Dates: start: 20191125
  25. MAGNESIUM SULFATE. [Concomitant]
     Active Substance: MAGNESIUM SULFATE
     Dosage: CORRECTIVE INJECTION 1MEQ/ML
     Dates: start: 20191125, end: 20191125
  26. METOCLOPRAMIDE. [Concomitant]
     Active Substance: METOCLOPRAMIDE
     Indication: HICCUPS
     Dates: start: 20191128, end: 20191201
  27. OLANZAPINE. [Concomitant]
     Active Substance: OLANZAPINE
     Indication: NAUSEA
     Dates: start: 20191129, end: 20191206
  28. ESOMEPRAZOLE MAGNESIUM DIHYDRATE [Concomitant]
     Active Substance: ESOMEPRAZOLE MAGNESIUM
     Indication: GASTRITIS
     Dates: start: 20191202, end: 20191206
  29. LACTEC D [Concomitant]
     Indication: NAUSEA
     Dates: start: 20191130, end: 20191206
  30. LACTEC D [Concomitant]
     Indication: DECREASED APPETITE
  31. ACELIO [Concomitant]
     Active Substance: ACETAMINOPHEN
     Indication: PYREXIA
     Dosage: BAG FOR INTRAVENOUS INJECTION
     Route: 042
     Dates: start: 20191206, end: 20191211
  32. APREPITANT. [Concomitant]
     Active Substance: APREPITANT
     Dates: start: 20191125, end: 20191127
  33. FAMOTIDINE. [Concomitant]
     Active Substance: FAMOTIDINE
     Dates: start: 20191125, end: 20191125
  34. LOXOPROFEN SODIUM HYDRATE [Concomitant]
     Active Substance: LOXOPROFEN SODIUM DIHYDRATE
     Indication: BACK PAIN
     Dates: start: 20200813, end: 20200827
  35. MAGCOROL P [Concomitant]
     Active Substance: MAGNESIUM CITRATE
     Dates: start: 20201109, end: 20201109
  36. CEFAZOLIN SODIUM. [Concomitant]
     Active Substance: CEFAZOLIN SODIUM
     Dates: start: 20201110, end: 20201110
  37. ZOLPIDEM TARTRATE. [Concomitant]
     Active Substance: ZOLPIDEM TARTRATE
     Indication: INSOMNIA
     Dates: start: 20191203, end: 20191203

REACTIONS (1)
  - Duodenal ulcer haemorrhage [Recovered/Resolved]

NARRATIVE: CASE EVENT DATE: 20191207
